FAERS Safety Report 10796173 (Version 1)
Quarter: 2015Q1

REPORT INFORMATION
  Report Type: Spontaneous
  Country: US (occurrence: US)
  Receive Date: 20150216
  Receipt Date: 20150216
  Transmission Date: 20150721
  Serious: Yes (Other)
  Sender: FDA-Public Use
  Company Number: US-ROCHE-1537837

PATIENT
  Sex: Female

DRUGS (3)
  1. PEPCID [Concomitant]
     Active Substance: FAMOTIDINE
  2. XOLAIR [Suspect]
     Active Substance: OMALIZUMAB
     Indication: URTICARIA CHOLINERGIC
     Route: 030
  3. ZYRTEC [Concomitant]
     Active Substance: CETIRIZINE HYDROCHLORIDE

REACTIONS (3)
  - Dyspnoea [Unknown]
  - Ventricular extrasystoles [Unknown]
  - Chest discomfort [Unknown]
